FAERS Safety Report 11416176 (Version 1)
Quarter: 2015Q3

REPORT INFORMATION
  Report Type: Spontaneous
  Country: US (occurrence: None)
  Receive Date: 20150824
  Receipt Date: 20150824
  Transmission Date: 20151125
  Serious: Yes (Disabling, Other)
  Sender: FDA-Public Use
  Company Number: None

PATIENT
  Age: 56 Year
  Sex: Female
  Weight: 65.32 kg

DRUGS (2)
  1. CIPRO HC [Suspect]
     Active Substance: CIPROFLOXACIN HYDROCHLORIDE\HYDROCORTISONE
     Indication: EAR INFECTION
     Dosage: 3 DROPS TWO TIMES A DAY X 7?
     Dates: start: 20150818, end: 20150820
  2. PROBIOTICS [Concomitant]
     Active Substance: PROBIOTICS NOS

REACTIONS (9)
  - Paraesthesia oral [None]
  - Pyrexia [None]
  - Heart rate increased [None]
  - Hypoaesthesia [None]
  - Formication [None]
  - Dizziness [None]
  - Pruritus [None]
  - Headache [None]
  - Emotional disorder [None]

NARRATIVE: CASE EVENT DATE: 20150818
